FAERS Safety Report 25265163 (Version 1)
Quarter: 2025Q2

REPORT INFORMATION
  Report Type: Spontaneous
  Country: FR (occurrence: FR)
  Receive Date: 20250502
  Receipt Date: 20250502
  Transmission Date: 20250717
  Serious: Yes (Other)
  Sender: MYLAN
  Company Number: None

PATIENT
  Age: 19 Year
  Sex: Male

DRUGS (24)
  1. DEXAMETHASONE [Suspect]
     Active Substance: DEXAMETHASONE
     Indication: Prophylaxis of nausea and vomiting
     Dates: start: 20231031, end: 20231031
  2. DEXAMETHASONE [Suspect]
     Active Substance: DEXAMETHASONE
     Route: 042
     Dates: start: 20231031, end: 20231031
  3. DEXAMETHASONE [Suspect]
     Active Substance: DEXAMETHASONE
     Route: 042
     Dates: start: 20231031, end: 20231031
  4. DEXAMETHASONE [Suspect]
     Active Substance: DEXAMETHASONE
     Dates: start: 20231031, end: 20231031
  5. PROPOFOL [Suspect]
     Active Substance: PROPOFOL
     Indication: General anaesthesia
     Dates: start: 20231031, end: 20231031
  6. PROPOFOL [Suspect]
     Active Substance: PROPOFOL
     Route: 042
     Dates: start: 20231031, end: 20231031
  7. PROPOFOL [Suspect]
     Active Substance: PROPOFOL
     Route: 042
     Dates: start: 20231031, end: 20231031
  8. PROPOFOL [Suspect]
     Active Substance: PROPOFOL
     Dates: start: 20231031, end: 20231031
  9. CISATRACURIUM [Suspect]
     Active Substance: CISATRACURIUM
     Indication: General anaesthesia
     Dates: start: 20231031, end: 20231031
  10. CISATRACURIUM [Suspect]
     Active Substance: CISATRACURIUM
     Route: 042
     Dates: start: 20231031, end: 20231031
  11. CISATRACURIUM [Suspect]
     Active Substance: CISATRACURIUM
     Route: 042
     Dates: start: 20231031, end: 20231031
  12. CISATRACURIUM [Suspect]
     Active Substance: CISATRACURIUM
     Dates: start: 20231031, end: 20231031
  13. SUFENTANIL CITRATE [Suspect]
     Active Substance: SUFENTANIL CITRATE
     Indication: General anaesthesia
     Dates: start: 20231031, end: 20231031
  14. SUFENTANIL CITRATE [Suspect]
     Active Substance: SUFENTANIL CITRATE
     Route: 042
     Dates: start: 20231031, end: 20231031
  15. SUFENTANIL CITRATE [Suspect]
     Active Substance: SUFENTANIL CITRATE
     Route: 042
     Dates: start: 20231031, end: 20231031
  16. SUFENTANIL CITRATE [Suspect]
     Active Substance: SUFENTANIL CITRATE
     Dates: start: 20231031, end: 20231031
  17. KETAMINE [Suspect]
     Active Substance: KETAMINE
     Indication: General anaesthesia
     Dates: start: 20231031, end: 20231031
  18. KETAMINE [Suspect]
     Active Substance: KETAMINE
     Route: 042
     Dates: start: 20231031, end: 20231031
  19. KETAMINE [Suspect]
     Active Substance: KETAMINE
     Route: 042
     Dates: start: 20231031, end: 20231031
  20. KETAMINE [Suspect]
     Active Substance: KETAMINE
     Dates: start: 20231031, end: 20231031
  21. Ringer lactate fresenius [Concomitant]
     Dates: start: 20231031, end: 20231031
  22. Ringer lactate fresenius [Concomitant]
     Route: 042
     Dates: start: 20231031, end: 20231031
  23. Ringer lactate fresenius [Concomitant]
     Route: 042
     Dates: start: 20231031, end: 20231031
  24. Ringer lactate fresenius [Concomitant]
     Dates: start: 20231031, end: 20231031

REACTIONS (2)
  - Urticaria [Recovered/Resolved]
  - Hypotension [Recovered/Resolved]

NARRATIVE: CASE EVENT DATE: 20231031
